FAERS Safety Report 6024034-9 (Version None)
Quarter: 2008Q4

REPORT INFORMATION
  Report Type: 
  Country: None (occurrence: None)
  Receive Date: 20081222
  Receipt Date: 20081001
  Transmission Date: 20090506
  Serious: No
  Sender: FDA-Public Use
  Company Number: SPV1-2008-02104

PATIENT
  Age: 8 Year
  Sex: Male
  Weight: 28.6 kg

DRUGS (2)
  1. VYVANSE [Suspect]
     Indication: ATTENTION DEFICIT/HYPERACTIVITY DISORDER
     Dosage: ORAL
     Route: 048
     Dates: start: 20070501, end: 20070501
  2. FLONASE [Concomitant]

REACTIONS (1)
  - DEPRESSED MOOD [None]
